FAERS Safety Report 19488808 (Version 1)
Quarter: 2021Q3

REPORT INFORMATION
  Report Type: Report from Study
  Country: MX (occurrence: MX)
  Receive Date: 20210703
  Receipt Date: 20210703
  Transmission Date: 20211014
  Serious: Yes (Other)
  Sender: FDA-Public Use
  Company Number: MX-AMGEN-MEXNI2021101964

PATIENT
  Age: 47 Year
  Sex: Female

DRUGS (2)
  1. TOPIRAMATE. [Concomitant]
     Active Substance: TOPIRAMATE
     Indication: PRODUCT USED FOR UNKNOWN INDICATION
     Dosage: UNK
     Route: 065
  2. GLASEEQ (ERENUMAB) [Suspect]
     Active Substance: ERENUMAB
     Indication: MIGRAINE
     Dosage: 1 DOSAGE FORM, QMO
     Route: 058
     Dates: start: 202002, end: 202005

REACTIONS (6)
  - Nausea [Recovered/Resolved]
  - Fatigue [Recovered/Resolved]
  - Hiatus hernia [Recovered/Resolved]
  - Gastritis [Recovered/Resolved]
  - Headache [Recovered/Resolved]
  - Malaise [Unknown]

NARRATIVE: CASE EVENT DATE: 202002
